FAERS Safety Report 23575792 (Version 1)
Quarter: 2024Q1

REPORT INFORMATION
  Report Type: Spontaneous
  Country: FR (occurrence: FR)
  Receive Date: 20240228
  Receipt Date: 20240228
  Transmission Date: 20240410
  Serious: Yes (Other)
  Sender: FDA-Public Use
  Company Number: FR-BAYER-2023A180110

PATIENT
  Age: 52 Year
  Sex: Female

DRUGS (2)
  1. MOXIFLOXACIN [Suspect]
     Active Substance: MOXIFLOXACIN
     Indication: Bronchitis
     Dosage: UNK,(FILM-COATED TABLET)
     Route: 048
     Dates: start: 20231206, end: 20231206
  2. YEAST [Concomitant]
     Active Substance: YEAST
     Dosage: UNK
     Route: 065

REACTIONS (4)
  - Hemiparaesthesia [Not Recovered/Not Resolved]
  - Gait disturbance [Recovered/Resolved]
  - Pain in extremity [Recovered/Resolved]
  - Sciatica [Unknown]

NARRATIVE: CASE EVENT DATE: 20231207
